FAERS Safety Report 17475573 (Version 1)
Quarter: 2020Q1

REPORT INFORMATION
  Report Type: Report from Study
  Country: BR (occurrence: BR)
  Receive Date: 20200228
  Receipt Date: 20200228
  Transmission Date: 20200409
  Serious: Yes (Other)
  Sender: FDA-Public Use
  Company Number: BR-JNJFOC-20190820166

PATIENT
  Sex: Female
  Weight: 122 kg

DRUGS (3)
  1. QUETIAPINE. [Concomitant]
     Active Substance: QUETIAPINE
     Route: 065
  2. STELARA [Suspect]
     Active Substance: USTEKINUMAB
     Indication: PSORIASIS
     Dosage: 2 SYRINGES OF 45 MG, EVERY 12 WEEKS
     Route: 058
  3. SERTRALINE [Concomitant]
     Active Substance: SERTRALINE HYDROCHLORIDE
     Route: 065

REACTIONS (2)
  - Arthralgia [Recovering/Resolving]
  - Memory impairment [Not Recovered/Not Resolved]
